FAERS Safety Report 11376217 (Version 2)
Quarter: 2015Q4

REPORT INFORMATION
  Report Type: Spontaneous
  Country: US (occurrence: US)
  Receive Date: 20150813
  Receipt Date: 20151009
  Transmission Date: 20160304
  Serious: No
  Sender: FDA-Public Use
  Company Number: US-PFIZER INC-2015257843

PATIENT
  Age: 74 Year
  Sex: Male
  Weight: 73 kg

DRUGS (18)
  1. SUTENT [Suspect]
     Active Substance: SUNITINIB MALATE
     Indication: CARCINOID TUMOUR
     Dosage: 25 MG, DAILY
     Route: 048
     Dates: start: 201501, end: 20150409
  2. ASPIRIN. [Suspect]
     Active Substance: ASPIRIN
     Indication: PLATELET DISORDER
     Dosage: 650 MG, DAILY
     Route: 048
     Dates: start: 20100920, end: 20120327
  3. PLAVIX [Suspect]
     Active Substance: CLOPIDOGREL BISULFATE
     Indication: CORONARY ARTERY DISEASE
     Dosage: UNK
     Dates: start: 20100920
  4. PLAVIX [Suspect]
     Active Substance: CLOPIDOGREL BISULFATE
     Indication: STENT PLACEMENT
     Dosage: 75 MG, DAILY
     Dates: start: 20100910
  5. VITAMIN B12 [Concomitant]
     Active Substance: CYANOCOBALAMIN
     Indication: ANAEMIA VITAMIN B12 DEFICIENCY
     Dosage: 1000 ?G, DAILY MON-FRI FOR 2 WEEKS
     Route: 030
     Dates: start: 2009
  6. VITAMIN B12 [Concomitant]
     Active Substance: CYANOCOBALAMIN
     Dosage: 1 DF, WEEKLY, WEEKLY SHOT FOR ONE YEAR
  7. SANDOSTATIN [Concomitant]
     Active Substance: OCTREOTIDE ACETATE
     Indication: CARCINOID TUMOUR
     Dosage: 20MG EVERY 28 DAYS
     Route: 030
     Dates: start: 20130903, end: 20150708
  8. VITAMIN B12 [Concomitant]
     Active Substance: CYANOCOBALAMIN
     Dosage: 1000 ?G, EVERY 28 DAYS
     Route: 030
  9. SUTENT [Suspect]
     Active Substance: SUNITINIB MALATE
     Dosage: 25 MG, DAILY (5 DAYS PER WEEK)
     Route: 048
     Dates: start: 20141223, end: 20150903
  10. SUTENT [Suspect]
     Active Substance: SUNITINIB MALATE
     Dosage: 25MG PILL BY MOUTH SIX DAYS A WEEK
     Route: 048
     Dates: start: 20150409, end: 20150716
  11. ASPIRIN. [Suspect]
     Active Substance: ASPIRIN
     Dosage: 81 MG, DAILY
     Dates: start: 20150318
  12. SUTENT [Suspect]
     Active Substance: SUNITINIB MALATE
     Dosage: 25MG, 5X/WEEK
     Route: 048
     Dates: start: 20150727
  13. ASPIRIN. [Suspect]
     Active Substance: ASPIRIN
     Dosage: 81 MG, DAILY
     Dates: start: 20100920
  14. PLAVIX [Suspect]
     Active Substance: CLOPIDOGREL BISULFATE
     Indication: PLATELET DISORDER
  15. SANDOSTATIN [Concomitant]
     Active Substance: OCTREOTIDE ACETATE
     Dosage: 30 MG EVERY 28 DAYS
     Dates: start: 20150708
  16. VITAMIN B12 [Concomitant]
     Active Substance: CYANOCOBALAMIN
     Dosage: 1 DF, EVERY 2 WEEKS FOR 6 MONTHS
  17. IBUPROFEN. [Suspect]
     Active Substance: IBUPROFEN
     Dosage: 600 MG, UNK
  18. ASPIRIN. [Suspect]
     Active Substance: ASPIRIN
     Indication: CORONARY ARTERY DISEASE
     Dosage: 325 MG, DAILY
     Dates: start: 20120327, end: 20150318

REACTIONS (4)
  - Gingival bleeding [Recovered/Resolved]
  - Thrombocytopenia [Recovering/Resolving]
  - Tooth disorder [Unknown]
  - Product use issue [Unknown]

NARRATIVE: CASE EVENT DATE: 20150716
